FAERS Safety Report 7350251-1 (Version None)
Quarter: 2011Q1

REPORT INFORMATION
  Report Type: 
  Country: None (occurrence: None)
  Receive Date: 20110301
  Receipt Date: 20110301
  Transmission Date: 20110831
  Serious: Yes (Death)
  Sender: FDA-Public Use
  Company Number: None

PATIENT
  Sex: Male
  Weight: 127.0072 kg

DRUGS (17)
  1. FUROSEMIDE [Concomitant]
  2. AMITIPTYLINE [Concomitant]
  3. RANIBIZUMAB [Suspect]
     Indication: DIABETIC RETINAL OEDEMA
     Dosage: MASKED, MONTHLY IO
     Dates: start: 20110209
  4. LASIX [Concomitant]
  5. ASPIRIN [Concomitant]
  6. NAPROXEN [Concomitant]
  7. METOPROLOL [Concomitant]
  8. RANIBIZUMAB [Suspect]
     Dosage: MASKED, MONTHLY IO
     Dates: start: 20110112
  9. POTASSIUM CHLORIDE [Concomitant]
  10. ZETIA [Concomitant]
  11. RENEW IN JOINT CARE [Concomitant]
  12. LANTUS [Concomitant]
  13. GLIPIZIDE [Concomitant]
  14. ACCUPRIL [Concomitant]
  15. LAVAZA [Concomitant]
  16. PROPO-NAPAP [Concomitant]
  17. ALLOPURINOL [Concomitant]

REACTIONS (1)
  - MYOCARDIAL INFARCTION [None]
